FAERS Safety Report 16012956 (Version 1)
Quarter: 2019Q1

REPORT INFORMATION
  Report Type: Spontaneous
  Country: BR (occurrence: BR)
  Receive Date: 20190227
  Receipt Date: 20190227
  Transmission Date: 20190418
  Serious: Yes (Other)
  Sender: FDA-Public Use
  Company Number: BR-PFIZER INC-2019082334

PATIENT
  Sex: Female

DRUGS (1)
  1. TOFACITINIB CITRATE [Suspect]
     Active Substance: TOFACITINIB CITRATE
     Dosage: UNK, 2X/DAY
     Dates: start: 201809

REACTIONS (3)
  - Drug-induced liver injury [Unknown]
  - Intentional product misuse [Unknown]
  - Transaminases increased [Unknown]

NARRATIVE: CASE EVENT DATE: 201901
